FAERS Safety Report 4605171-X (Version None)
Quarter: 2005Q2

REPORT INFORMATION
  Report Type: 
  Country: None (occurrence: None)
  Receive Date: 20050217
  Receipt Date: 20041117
  Transmission Date: 20051028
  Serious: Yes (Hospitalization)
  Sender: FDA-Public Use
  Company Number: US-2004-035289

PATIENT
  Sex: Female

DRUGS (2)
  1. CLIMARA [Suspect]
     Indication: MIGRAINE
     Dosage: 0.1 MG/D, CONT, TRANSDERMAL
     Route: 062
     Dates: start: 20040501
  2. ORAL CONTRACEPTIVE NOS(ORAL CONTRACEPTIVE NOS) [Suspect]
     Indication: MIGRAINE
     Dates: start: 20030101

REACTIONS (1)
  - CEREBROVASCULAR ACCIDENT [None]
